FAERS Safety Report 6828171-8 (Version None)
Quarter: 2010Q3

REPORT INFORMATION
  Report Type: 
  Country: None (occurrence: None)
  Receive Date: 20100709
  Receipt Date: 20100628
  Transmission Date: 20110219
  Serious: Yes (Hospitalization, Other)
  Sender: FDA-Public Use
  Company Number: SE-ROCHE-707293

PATIENT
  Age: 67 Year
  Sex: Male

DRUGS (6)
  1. ROACTEMRA [Suspect]
     Indication: RHEUMATOID ARTHRITIS
     Dosage: DRUG REPORTED: ROACTEMRA CONCENTRATION OF SOLUTION OF INFUSION 20 MG/ML, DOSE: 4 DFT
     Route: 065
     Dates: start: 20100115, end: 20100401
  2. METOPROLOL [Concomitant]
  3. FELODIPINE [Concomitant]
  4. ENALAPRIL MALEATE [Concomitant]
  5. ESIDRIX [Concomitant]
  6. DIGOXIN [Concomitant]
     Route: 065

REACTIONS (2)
  - DIABETES MELLITUS [None]
  - TRANSAMINASES INCREASED [None]
